FAERS Safety Report 21894705 (Version 1)
Quarter: 2023Q1

REPORT INFORMATION
  Report Type: Spontaneous
  Country: GB (occurrence: GB)
  Receive Date: 20230122
  Receipt Date: 20230122
  Transmission Date: 20230417
  Serious: Yes (Other)
  Sender: FDA-Public Use
  Company Number: None

PATIENT
  Age: 70 Year
  Sex: Female
  Weight: 77 kg

DRUGS (3)
  1. MOLNUPIRAVIR [Suspect]
     Active Substance: MOLNUPIRAVIR
     Indication: COVID-19 immunisation
     Dosage: 800 MILLIGRAM, BID, LOT# SN102546227384; GTIN 00300065055060
     Route: 048
     Dates: start: 20221228, end: 20230101
  2. ESTRADIOL [Concomitant]
     Active Substance: ESTRADIOL
     Indication: Osteoporosis postmenopausal
     Dates: start: 20030801
  3. SYNTHROID [Concomitant]
     Active Substance: LEVOTHYROXINE SODIUM
     Indication: Hypothyroidism
     Dates: start: 20050701

REACTIONS (8)
  - Tachycardia [Recovered/Resolved]
  - Nasal congestion [Recovered/Resolved]
  - Headache [Recovered/Resolved]
  - Sneezing [Recovered/Resolved]
  - Rhinorrhoea [Recovered/Resolved]
  - Palpitations [Recovered/Resolved]
  - Laryngeal disorder [Recovered/Resolved]
  - Pharyngeal disorder [Recovered/Resolved]

NARRATIVE: CASE EVENT DATE: 20221229
